FAERS Safety Report 4432282-4 (Version None)
Quarter: 2004Q3

REPORT INFORMATION
  Report Type: 
  Country: None (occurrence: None)
  Receive Date: 20040819
  Receipt Date: 20040810
  Transmission Date: 20050211
  Serious: Yes (Hospitalization)
  Sender: FDA-Public Use
  Company Number: 2004UW17021

PATIENT
  Age: 74 Year

DRUGS (1)
  1. FASLODEX [Suspect]
     Indication: BREAST CANCER METASTATIC

REACTIONS (2)
  - CEREBROVASCULAR ACCIDENT [None]
  - MITRAL VALVE DISEASE [None]
